FAERS Safety Report 10589168 (Version 1)
Quarter: 2014Q4

REPORT INFORMATION
  Report Type: Spontaneous
  Country: RO (occurrence: RO)
  Receive Date: 20141118
  Receipt Date: 20141118
  Transmission Date: 20150529
  Serious: Yes (Hospitalization, Other)
  Sender: FDA-Public Use
  Company Number: RO-AUROBINDO-AUR-APL-2014-12004

PATIENT
  Age: 28 Year
  Sex: Female

DRUGS (2)
  1. OLANZAPINE 10MG [Suspect]
     Active Substance: OLANZAPINE
     Indication: SCHIZOPHRENIA
     Dosage: 10 MG, DAILY
     Route: 065
  2. VALPROIC ACID. [Suspect]
     Active Substance: VALPROIC ACID
     Indication: SCHIZOPHRENIA
     Dosage: 1000 MG, DAILY
     Route: 065

REACTIONS (14)
  - Withdrawal syndrome [Recovering/Resolving]
  - Psychomotor hyperactivity [Recovering/Resolving]
  - Hypercholesterolaemia [Recovered/Resolved]
  - Insomnia [Recovering/Resolving]
  - Schizophrenia [Recovering/Resolving]
  - Weight increased [Unknown]
  - Sedation [Unknown]
  - Anaemia [Not Recovered/Not Resolved]
  - Somnolence [Unknown]
  - Incoherent [Recovering/Resolving]
  - Mood altered [Recovering/Resolving]
  - Dysphoria [Recovering/Resolving]
  - Delusion [Recovering/Resolving]
  - Exposure during pregnancy [Unknown]
